FAERS Safety Report 8852533 (Version 1)
Quarter: 2012Q4

REPORT INFORMATION
  Report Type: Report from Study
  Country: DE (occurrence: DE)
  Receive Date: 20121022
  Receipt Date: 20121022
  Transmission Date: 20130627
  Serious: Yes (Hospitalization)
  Sender: FDA-Public Use
  Company Number: DE-ROCHE-1147753

PATIENT
  Age: 44 Year
  Sex: Male
  Weight: 56 kg

DRUGS (1)
  1. CAPECITABINE [Suspect]
     Indication: METASTATIC GASTRIC CANCER
     Route: 048
     Dates: start: 20120117, end: 20120130

REACTIONS (2)
  - Pyrexia [Recovered/Resolved]
  - Somnolence [Recovered/Resolved]
